FAERS Safety Report 9973468 (Version 1)
Quarter: 2014Q1

REPORT INFORMATION
  Report Type: Report from Study
  Country: PT (occurrence: PT)
  Receive Date: 20140306
  Receipt Date: 20140306
  Transmission Date: 20141002
  Serious: Yes (Death)
  Sender: FDA-Public Use
  Company Number: PT-BAXTER-2014BAX010398

PATIENT
  Age: 85 Year
  Sex: Female

DRUGS (15)
  1. EXTRANEAL 75MG/ML - SACO - 5 UNIDADE(S) - 2000 ML [Suspect]
     Indication: RENAL FAILURE CHRONIC
     Route: 033
     Dates: start: 20130909, end: 20140215
  2. EXTRANEAL 75MG/ML - SACO - 5 UNIDADE(S) - 2000 ML [Suspect]
     Indication: PERITONEAL DIALYSIS
  3. PHYSIONEAL 40 GLUCOSE 1,36% P/V/ 13,6 MG/ML CLEAR-FLEX [Suspect]
     Indication: RENAL FAILURE CHRONIC
     Route: 033
     Dates: start: 20130909, end: 20140215
  4. PHYSIONEAL 40 GLUCOSE 1,36% P/V/ 13,6 MG/ML CLEAR-FLEX [Suspect]
     Indication: PERITONEAL DIALYSIS
  5. PHYSIONEAL 40 GLUCOSE 2,27% P/V/ 22,7 MG/ML CLEAR-FLEX [Suspect]
     Indication: PERITONEAL DIALYSIS
     Route: 033
     Dates: start: 20130909, end: 20140215
  6. PHYSIONEAL 40 GLUCOSE 2,27% P/V/ 22,7 MG/ML CLEAR-FLEX [Suspect]
     Indication: RENAL FAILURE CHRONIC
  7. PHYSIONEAL 40 GLUCOSE 3,86% P/V / 38,6 MG/ML [Suspect]
     Indication: RENAL FAILURE CHRONIC
     Route: 033
  8. PHYSIONEAL 40 GLUCOSE 3,86% P/V / 38,6 MG/ML [Suspect]
     Indication: PERITONEAL DIALYSIS
  9. OMEPRAZOLE [Concomitant]
     Indication: PRODUCT USED FOR UNKNOWN INDICATION
     Route: 048
  10. COMPLEX B [Concomitant]
     Indication: PRODUCT USED FOR UNKNOWN INDICATION
     Route: 048
  11. METOLAZONE [Concomitant]
     Indication: PRODUCT USED FOR UNKNOWN INDICATION
     Route: 048
  12. SENNOSIDES [Concomitant]
     Indication: PRODUCT USED FOR UNKNOWN INDICATION
     Route: 048
  13. FUROSEMIDE [Concomitant]
     Indication: PRODUCT USED FOR UNKNOWN INDICATION
     Dosage: TWO TABLETS TWICE A DAY
     Route: 048
  14. HYDROXYZINE [Concomitant]
     Indication: PRODUCT USED FOR UNKNOWN INDICATION
     Dosage: AS NEEDED
     Route: 048
  15. DARBEPOETIN ALFA [Concomitant]
     Indication: PRODUCT USED FOR UNKNOWN INDICATION
     Route: 058

REACTIONS (1)
  - Death [Fatal]
